FAERS Safety Report 24687430 (Version 1)
Quarter: 2024Q4

REPORT INFORMATION
  Report Type: Spontaneous
  Country: TR (occurrence: TR)
  Receive Date: 20241202
  Receipt Date: 20241202
  Transmission Date: 20250115
  Serious: Yes (Hospitalization, Other)
  Sender: MEITHEAL PHARMACEUTICALS
  Company Number: TR-MEITHEAL-2024MPLIT00403

PATIENT
  Age: 74 Year
  Sex: Female

DRUGS (3)
  1. ZOLEDRONIC ACID [Suspect]
     Active Substance: ZOLEDRONIC ACID
     Indication: Osteoporosis
     Dosage: FOR 15 MINUTES
     Route: 042
     Dates: start: 20230310
  2. ZOLEDRONIC ACID [Suspect]
     Active Substance: ZOLEDRONIC ACID
     Indication: Osteoporosis
  3. PREDNISOLONE [Concomitant]
     Active Substance: PREDNISOLONE
     Indication: Spondyloarthropathy
     Dosage: SINCE OCT 2021
     Route: 065

REACTIONS (4)
  - Pancreatitis acute [Recovered/Resolved]
  - Myalgia [Recovered/Resolved]
  - Arthralgia [Recovered/Resolved]
  - Product use in unapproved indication [Unknown]
